FAERS Safety Report 21188679 (Version 1)
Quarter: 2022Q3

REPORT INFORMATION
  Report Type: Spontaneous
  Country: NL (occurrence: NL)
  Receive Date: 20220809
  Receipt Date: 20220809
  Transmission Date: 20221027
  Serious: Yes (Hospitalization, Disabling)
  Sender: FDA-Public Use
  Company Number: None

PATIENT
  Sex: Male
  Weight: 76 kg

DRUGS (1)
  1. PAROXETINE [Suspect]
     Active Substance: PAROXETINE
     Indication: Anxiety
     Dosage: 20 MILLIGRAM DAILY; 1 X PER DAY 1 PIECE, FORM STRENGTH :  20MG / BRAND NAME NOT SPECIFIED , DURATION
     Dates: start: 2018, end: 20220604

REACTIONS (1)
  - Urinary retention [Not Recovered/Not Resolved]
